FAERS Safety Report 19237672 (Version 1)
Quarter: 2021Q2

REPORT INFORMATION
  Report Type: Spontaneous
  Country: GB (occurrence: GB)
  Receive Date: 20210510
  Receipt Date: 20210510
  Transmission Date: 20210717
  Serious: Yes (Death)
  Sender: FDA-Public Use
  Company Number: GB-MALLINCKRODT PHARMACEUTICALS-T202101973

PATIENT
  Sex: Male

DRUGS (1)
  1. UVADEX [Suspect]
     Active Substance: METHOXSALEN
     Indication: GRAFT VERSUS HOST DISEASE
     Dosage: UNK UNK, MONTHLY, EXTRACORPOREAL
     Route: 050
     Dates: end: 20210330

REACTIONS (2)
  - Product use in unapproved indication [Unknown]
  - Sudden death [Fatal]
